FAERS Safety Report 7577686-6 (Version None)
Quarter: 2011Q2

REPORT INFORMATION
  Report Type: 
  Country: None (occurrence: None)
  Receive Date: 20110621
  Receipt Date: 20110606
  Transmission Date: 20111010
  Serious: Yes (Death, Other)
  Sender: FDA-Public Use
  Company Number: 2011MA006878

PATIENT
  Age: 23 Year
  Sex: Male

DRUGS (6)
  1. MIRTAZAPINE [Concomitant]
  2. DIAZEPAM [Suspect]
  3. ACETAMINOPHEN [Concomitant]
  4. SODIUM OXYBATE [Suspect]
  5. COCAINE (COCAINE) [Suspect]
  6. AMPHETAMINE (NO PREF. NAME) [Suspect]

REACTIONS (3)
  - DRUG SCREEN POSITIVE [None]
  - TOXICITY TO VARIOUS AGENTS [None]
  - OVERDOSE [None]
